FAERS Safety Report 9088345 (Version 1)
Quarter: 2013Q1

REPORT INFORMATION
  Report Type: Spontaneous
  Country: US (occurrence: US)
  Receive Date: 20130202
  Receipt Date: 20130202
  Transmission Date: 20140127
  Serious: Yes (Other)
  Sender: FDA-Public Use
  Company Number: US-TEVA-383817USA

PATIENT
  Sex: 0

DRUGS (1)
  1. SYNRIBO [Suspect]

REACTIONS (2)
  - Toxicity to various agents [Unknown]
  - Treatment failure [Unknown]
